FAERS Safety Report 19116110 (Version 3)
Quarter: 2021Q3

REPORT INFORMATION
  Report Type: Spontaneous
  Country: US (occurrence: US)
  Receive Date: 20210409
  Receipt Date: 20210924
  Transmission Date: 20211014
  Serious: Yes (Other)
  Sender: FDA-Public Use
  Company Number: US-MYLANLABS-2021M1020198

PATIENT
  Sex: Female
  Weight: 52 kg

DRUGS (2)
  1. ESTRADIOL VAGINAL CREAM USP [Suspect]
     Active Substance: ESTRADIOL
     Dosage: APPLY A FINGERTIP, TWICE A WEEK.
     Route: 067
  2. ESTRADIOL VAGINAL CREAM USP [Suspect]
     Active Substance: ESTRADIOL
     Indication: URETHRAL CARUNCLE
     Dosage: EVERY OTHER DAY
     Route: 067
     Dates: end: 20210330

REACTIONS (7)
  - Urethral haemorrhage [Not Recovered/Not Resolved]
  - Off label use [Unknown]
  - Urethral caruncle [Not Recovered/Not Resolved]
  - Drug ineffective [Unknown]
  - Product physical consistency issue [Unknown]
  - Product availability issue [Unknown]
  - Product dose omission issue [Unknown]
